FAERS Safety Report 7101983-1 (Version None)
Quarter: 2010Q4

REPORT INFORMATION
  Report Type: 
  Country: None (occurrence: None)
  Receive Date: 20101115
  Receipt Date: 20101103
  Transmission Date: 20110411
  Serious: Yes (Hospitalization)
  Sender: FDA-Public Use
  Company Number: US-ELI_LILLY_AND_COMPANY-US201011000874

PATIENT
  Sex: Female
  Weight: 90.703 kg

DRUGS (21)
  1. BYETTA [Suspect]
     Indication: TYPE 2 DIABETES MELLITUS
     Dosage: 10 UG, 2/D
     Route: 058
  2. PROZAC [Concomitant]
     Dosage: 60 MG, EACH MORNING
  3. GLUCOPHAGE [Concomitant]
     Indication: TYPE 2 DIABETES MELLITUS
     Dosage: 500 MG, DAILY (1/D)
  4. NORVASC [Concomitant]
     Dosage: UNK, EACH MORNING
  5. PRILOSEC [Concomitant]
     Dosage: 20 MG, 2/D
  6. SYNTHROID [Concomitant]
     Dosage: 175 MG, DAILY (1/D)
  7. MOBIC [Concomitant]
     Dosage: 15 MG, DAILY (1/D)
  8. ASPIRIN [Concomitant]
     Dosage: 81 MG, DAILY (1/D)
  9. STOOL SOFTENER [Concomitant]
     Dosage: UNK, 2/D
  10. CALCIUM WITH VITAMIN D [Concomitant]
     Dosage: 600 MG, 2/D
  11. DITROPAN [Concomitant]
     Dosage: 10 MG, 2/D
  12. TOPAMAX [Concomitant]
     Dosage: 200 MG, EACH EVENING
  13. ATIVAN [Concomitant]
     Dosage: 1 MG, EACH EVENING
  14. THORAZINE [Concomitant]
     Dosage: 200 MG, EACH EVENING
  15. XANAX [Concomitant]
     Dosage: 2 MG, EACH MORNING
  16. MACRODANTIN [Concomitant]
     Dosage: 100 MG, 2/W
  17. GEMFIBROZIL [Concomitant]
     Dosage: 600 MG, EACH MORNING
  18. MULTI-VITAMIN [Concomitant]
  19. VITAMIN D [Concomitant]
     Dosage: 1000 IU, UNK
  20. LOVAZA [Concomitant]
     Dosage: UNK, 3/D
  21. LAMICTAL [Concomitant]
     Dosage: 20 MG, EACH MORNING

REACTIONS (5)
  - ARTHRALGIA [None]
  - HYPOACUSIS [None]
  - OFF LABEL USE [None]
  - OSTEOARTHRITIS [None]
  - SCAR [None]
